FAERS Safety Report 10029104 (Version 1)
Quarter: 2014Q1

REPORT INFORMATION
  Report Type: Spontaneous
  Country: US (occurrence: US)
  Receive Date: 20140321
  Receipt Date: 20140321
  Transmission Date: 20141002
  Serious: No
  Sender: FDA-Public Use
  Company Number: US-PFIZER INC-2014079823

PATIENT
  Age: 7 Year
  Sex: Female
  Weight: 29.93 kg

DRUGS (5)
  1. ZOLOFT [Suspect]
     Dosage: UNK
  2. FLONASE [Concomitant]
     Indication: HYPERSENSITIVITY
     Dosage: UNK
  3. BROMFED [Concomitant]
     Indication: RHINORRHOEA
     Dosage: UNK
  4. PREVACID [Concomitant]
     Indication: GASTROOESOPHAGEAL REFLUX DISEASE
     Dosage: UNK
  5. ZYRTEC [Concomitant]
     Dosage: UNK

REACTIONS (1)
  - Drug ineffective [Unknown]
